FAERS Safety Report 22330532 (Version 4)
Quarter: 2023Q2

REPORT INFORMATION
  Report Type: Report from Study
  Country: DE (occurrence: None)
  Receive Date: 20230517
  Receipt Date: 20230608
  Transmission Date: 20230721
  Serious: Yes (Life-Threatening, Hospitalization)
  Sender: FDA-Public Use
  Company Number: DE-ROCHE-3071191

PATIENT
  Age: 62 Year
  Sex: Male
  Weight: 98 kg

DRUGS (21)
  1. OBINUTUZUMAB [Suspect]
     Active Substance: OBINUTUZUMAB
     Indication: Follicular lymphoma
     Dosage: DATE OF MOST RECENT DOSE OF OBINUTUZUMAB PRIOR TO AE ONSET ON 13/APR/2022, 21/SEP/2022.
     Route: 041
     Dates: start: 20211208, end: 20220921
  2. COPANLISIB [Suspect]
     Active Substance: COPANLISIB
     Indication: Follicular lymphoma
     Dosage: DATE OF MOST RECENT DOSE OF COPANLISIB PRIOR TO AE ONSET ON13/APR/2022, 21/SEP/2022
     Route: 041
     Dates: start: 20211208, end: 20220921
  3. PANTOPRAZOLE SODIUM [Concomitant]
     Active Substance: PANTOPRAZOLE SODIUM
  4. ROSUVASTATIN [Concomitant]
     Active Substance: ROSUVASTATIN
     Indication: Prophylaxis
  5. SIMVASTATIN [Concomitant]
     Active Substance: SIMVASTATIN
     Indication: Prophylaxis
  6. ASPIRIN [Concomitant]
     Active Substance: ASPIRIN
     Indication: Coronary artery disease
  7. BENZYDAMINE HYDROCHLORIDE [Concomitant]
     Active Substance: BENZYDAMINE HYDROCHLORIDE
     Indication: Mucosal inflammation
     Dates: start: 20210120
  8. RIVAROXABAN [Concomitant]
     Active Substance: RIVAROXABAN
     Dates: start: 20210209
  9. MIRTAZAPINE [Concomitant]
     Active Substance: MIRTAZAPINE
     Indication: Family stress
     Dates: start: 20211208
  10. ACETAMINOPHEN [Concomitant]
     Active Substance: ACETAMINOPHEN
     Indication: Premedication
     Dates: start: 20211208
  11. CIMETIDIN [Concomitant]
     Indication: Premedication
     Dates: start: 20211208
  12. CLEMASTINE [Concomitant]
     Active Substance: CLEMASTINE
     Indication: Premedication
     Dates: start: 20211208
  13. PREDNISOLONE [Concomitant]
     Active Substance: PREDNISOLONE
     Indication: Premedication
     Dates: start: 20211208
  14. AMPHOTERICIN B [Concomitant]
     Active Substance: AMPHOTERICIN B
     Indication: Mucosal inflammation
     Dates: start: 20220106
  15. CLOPIDOGREL [Concomitant]
     Active Substance: CLOPIDOGREL BISULFATE
     Dates: start: 20220209
  16. CHOLECALCIFEROL [Concomitant]
     Active Substance: CHOLECALCIFEROL
  17. CANDESARTAN [Concomitant]
     Active Substance: CANDESARTAN
     Indication: Hypertension
     Dates: start: 20220414
  18. ACYCLOVIR [Concomitant]
     Active Substance: ACYCLOVIR
     Dates: start: 20220530
  19. SULFAMETHOXAZOLE\TRIMETHOPRIM [Concomitant]
     Active Substance: SULFAMETHOXAZOLE\TRIMETHOPRIM
     Dates: start: 20220530
  20. GLANDOMED [Concomitant]
     Indication: Mucosal inflammation
     Dates: start: 20220803
  21. AMPHOTERICIN B [Concomitant]
     Active Substance: AMPHOTERICIN B
     Dates: start: 20220106

REACTIONS (5)
  - COVID-19 pneumonia [Recovering/Resolving]
  - Respiratory failure [Recovered/Resolved]
  - Spinal stenosis [Recovered/Resolved]
  - Coronavirus infection [Recovered/Resolved]
  - Polyneuropathy [Recovering/Resolving]

NARRATIVE: CASE EVENT DATE: 20220324
